FAERS Safety Report 24544306 (Version 1)
Quarter: 2024Q4

REPORT INFORMATION
  Report Type: Spontaneous
  Country: US (occurrence: US)
  Receive Date: 20241024
  Receipt Date: 20241024
  Transmission Date: 20250114
  Serious: Yes (Life-Threatening, Hospitalization)
  Sender: MACLEODS
  Company Number: US-MLMSERVICE-20241009-PI222320-00322-1

PATIENT

DRUGS (2)
  1. TRAMADOL [Suspect]
     Active Substance: TRAMADOL
     Indication: Product used for unknown indication
     Route: 065
  2. BACLOFEN [Suspect]
     Active Substance: BACLOFEN
     Indication: Product used for unknown indication
     Route: 065

REACTIONS (6)
  - Pulseless electrical activity [Recovered/Resolved]
  - Somatosensory evoked potentials abnormal [Recovering/Resolving]
  - Status epilepticus [Recovering/Resolving]
  - Coma [Recovered/Resolved]
  - Cognitive disorder [Recovering/Resolving]
  - Overdose [Recovering/Resolving]
